FAERS Safety Report 4534954-X (Version None)
Quarter: 2004Q4

REPORT INFORMATION
  Report Type: 
  Country: None (occurrence: None)
  Receive Date: 20041222
  Receipt Date: 20040910
  Transmission Date: 20050328
  Serious: No
  Sender: FDA-Public Use
  Company Number: US-BRISTOL-MYERS SQUIBB COMPANY-12700191

PATIENT
  Sex: Female

DRUGS (1)
  1. PRAVACHOL [Suspect]
     Indication: LOW DENSITY LIPOPROTEIN

REACTIONS (1)
  - ALANINE AMINOTRANSFERASE INCREASED [None]
